FAERS Safety Report 21841887 (Version 3)
Quarter: 2023Q1

REPORT INFORMATION
  Report Type: Report from Study
  Country: US (occurrence: US)
  Receive Date: 20230110
  Receipt Date: 20230228
  Transmission Date: 20230418
  Serious: Yes (Other)
  Sender: FDA-Public Use
  Company Number: US-GSKCCFUS-Case-01592463_AE-89972

PATIENT

DRUGS (1)
  1. BELANTAMAB MAFODOTIN [Suspect]
     Active Substance: BELANTAMAB MAFODOTIN
     Indication: Plasma cell myeloma
     Dosage: UNK
     Dates: start: 202106

REACTIONS (13)
  - Breast cancer [Recovered/Resolved]
  - Visual impairment [Unknown]
  - Night blindness [Recovered/Resolved]
  - Photophobia [Recovered/Resolved]
  - Dry eye [Recovered/Resolved]
  - Sensation of foreign body [Recovered/Resolved]
  - Keratopathy [Unknown]
  - Visual acuity reduced [Unknown]
  - Light chain analysis decreased [Unknown]
  - Ocular toxicity [Unknown]
  - Vision blurred [Unknown]
  - Halo vision [Unknown]
  - Inappropriate schedule of product administration [Unknown]

NARRATIVE: CASE EVENT DATE: 20210601
